FAERS Safety Report 9196507 (Version 1)
Quarter: 2013Q1

REPORT INFORMATION
  Report Type: Spontaneous
  Country: US (occurrence: None)
  Receive Date: 20120709
  Receipt Date: 20120709
  Transmission Date: 20140127
  Serious: Yes (Hospitalization)
  Sender: FDA-Public Use
  Company Number: 2012HGS-003384

PATIENT
  Age: 50 Year
  Sex: Female
  Weight: 96.62 kg

DRUGS (15)
  1. BENLYSTA [Suspect]
     Indication: SYSTEMIC LUPUS ERYTHEMATOSUS
     Dates: start: 20120216
  2. GLUCOPHAGE [Concomitant]
  3. FLEXERIL [Concomitant]
  4. VOLTAREN [Concomitant]
  5. NEURONTIN [Concomitant]
  6. LISINOPRIL [Concomitant]
  7. NORVASC [Concomitant]
  8. LANTUS [Concomitant]
  9. PREDNISONE [Concomitant]
  10. FOLIC ACID [Concomitant]
  11. POTASSIUM [Concomitant]
  12. IRON [Concomitant]
  13. BUTRANS [Concomitant]
  14. MSIR [Concomitant]
  15. TYLENOL [Suspect]

REACTIONS (2)
  - Pneumonia [None]
  - Dyspnoea [None]
